FAERS Safety Report 22134406 (Version 1)
Quarter: 2023Q1

REPORT INFORMATION
  Report Type: Spontaneous
  Country: US (occurrence: US)
  Receive Date: 20230324
  Receipt Date: 20230324
  Transmission Date: 20230418
  Serious: Yes (Hospitalization)
  Sender: FDA-Public Use
  Company Number: US-MYLANLABS-2023M1031343

PATIENT
  Age: 53 Year
  Sex: Male

DRUGS (8)
  1. VORICONAZOLE [Suspect]
     Active Substance: VORICONAZOLE
     Indication: Fungal infection
     Dosage: 6 MILLIGRAM/KILOGRAM, LOADING DOSE
     Route: 042
  2. VORICONAZOLE [Suspect]
     Active Substance: VORICONAZOLE
     Dosage: 4 MILLIGRAM/KILOGRAM, BID
     Route: 042
  3. VORICONAZOLE [Suspect]
     Active Substance: VORICONAZOLE
     Indication: Fungal infection
     Dosage: UNK
     Route: 048
  4. AMPHOTERICIN B [Suspect]
     Active Substance: AMPHOTERICIN B
     Indication: Fungal infection
     Dosage: 5 MILLIGRAM/KILOGRAM, QD (INITIALLY TREATMENT COURSE WAS COMPLETED)
     Route: 065
  5. AMPHOTERICIN B [Suspect]
     Active Substance: AMPHOTERICIN B
     Dosage: UNK, (TREATMENT AGAIN STARTED)
     Route: 065
  6. MICAFUNGIN [Suspect]
     Active Substance: MICAFUNGIN
     Indication: Fungal infection
     Dosage: 150 MILLIGRAM, QD (INITIALLY TREATMENT COURSE WAS COMPLETED)
     Route: 042
  7. MICAFUNGIN [Suspect]
     Active Substance: MICAFUNGIN
     Dosage: UNK, TREATMENT AGAIN STARTED
     Route: 042
  8. POSACONAZOLE [Suspect]
     Active Substance: POSACONAZOLE
     Indication: Fungal infection
     Dosage: UNK
     Route: 065

REACTIONS (1)
  - Drug ineffective [Unknown]
